FAERS Safety Report 8348732-7 (Version None)
Quarter: 2012Q2

REPORT INFORMATION
  Report Type: 
  Country: None (occurrence: None)
  Receive Date: 20120508
  Receipt Date: 20120427
  Transmission Date: 20120825
  Serious: Yes (Death, Hospitalization)
  Sender: FDA-Public Use
  Company Number: 2012AL000039

PATIENT
  Age: 65 Year
  Sex: Male
  Weight: 57.4 kg

DRUGS (1)
  1. PRALATREXATE (PRALATREXATE) [Suspect]
     Indication: PERIPHERAL T-CELL LYMPHOMA UNSPECIFIED
     Dosage: 25 MG;QW;IV
     Route: 042
     Dates: start: 20110808, end: 20120409

REACTIONS (18)
  - SUBDURAL HAEMATOMA [None]
  - RESPIROVIRUS TEST POSITIVE [None]
  - LETHARGY [None]
  - PARTIAL SEIZURES [None]
  - CHEST PAIN [None]
  - PULSELESS ELECTRICAL ACTIVITY [None]
  - FALL [None]
  - DYSPNOEA [None]
  - CONFUSIONAL STATE [None]
  - HAEMORRHAGE INTRACRANIAL [None]
  - ASPIRATION [None]
  - CLOSTRIDIUM DIFFICILE COLITIS [None]
  - AGITATION [None]
  - HEAD INJURY [None]
  - MUSCULAR WEAKNESS [None]
  - LOSS OF CONSCIOUSNESS [None]
  - SUBARACHNOID HAEMORRHAGE [None]
  - CARDIAC ARREST [None]
